FAERS Safety Report 6649709-X (Version None)
Quarter: 2010Q1

REPORT INFORMATION
  Report Type: 
  Country: None (occurrence: None)
  Receive Date: 20100324
  Receipt Date: 20100324
  Transmission Date: 20100710
  Serious: No
  Sender: FDA-Public Use
  Company Number: None

PATIENT
  Age: 51 Year
  Sex: Female
  Weight: 68.0396 kg

DRUGS (1)
  1. CIPROFLOXACIN HCL [Suspect]
     Indication: RESPIRATORY DISORDER
     Dosage: 500 MG 1 TAB TWICWE DAILY PO, DAYS
     Route: 048
     Dates: start: 20100310, end: 20100313

REACTIONS (6)
  - ASTHENIA [None]
  - CONDITION AGGRAVATED [None]
  - COUGH [None]
  - DRUG INEFFECTIVE [None]
  - NASAL CONGESTION [None]
  - PRODUCT MEASURED POTENCY ISSUE [None]
